FAERS Safety Report 8941809 (Version 2)
Quarter: 2013Q1

REPORT INFORMATION
  Report Type: Report from Study
  Country: US (occurrence: US)
  Receive Date: 20121203
  Receipt Date: 20130125
  Transmission Date: 20140127
  Serious: Yes (Hospitalization)
  Sender: FDA-Public Use
  Company Number: US-ACTELION-A-NJ2012-74246

PATIENT
  Age: 52 Year
  Sex: Male

DRUGS (2)
  1. TRACLEER [Suspect]
     Indication: PULMONARY ARTERIAL HYPERTENSION
     Dosage: UNK
     Route: 048
     Dates: start: 20091217
  2. ADCIRCA [Concomitant]

REACTIONS (3)
  - Heart valve incompetence [Recovering/Resolving]
  - Heart valve operation [Recovering/Resolving]
  - Local swelling [Unknown]
